FAERS Safety Report 10010275 (Version 2)
Quarter: 2014Q2

REPORT INFORMATION
  Report Type: Spontaneous
  Country: IE (occurrence: IE)
  Receive Date: 20140314
  Receipt Date: 20140404
  Transmission Date: 20141212
  Serious: Yes (Hospitalization)
  Sender: FDA-Public Use
  Company Number: IE-AMGEN-IRLSP2014016830

PATIENT
  Age: 80 Year
  Sex: Female

DRUGS (20)
  1. DEXAMETHASONE [Concomitant]
  2. VOLTAREN                           /00372301/ [Concomitant]
  3. ELTROXIN [Concomitant]
  4. PREDNISONE [Concomitant]
  5. DIGOXIN [Concomitant]
  6. DIFLUCAN [Concomitant]
  7. LYRICA [Concomitant]
  8. ARANESP [Suspect]
     Indication: PLASMA CELL MYELOMA
     Dosage: 500 MUG, Q3WK
     Route: 058
     Dates: start: 20100909
  9. VELCADE [Concomitant]
     Route: 065
  10. ALLOPURINOL [Concomitant]
  11. CARDICOR [Concomitant]
  12. NEXIUM                             /01479302/ [Concomitant]
  13. CYCLOPHOSPHAMIDE [Concomitant]
  14. REVLIMID [Concomitant]
  15. PANADOL                            /00020001/ [Concomitant]
  16. CALCICHEW [Concomitant]
  17. LIPITOR [Concomitant]
  18. FOLIC ACID [Concomitant]
  19. TRAMADOL [Concomitant]
  20. NEORECORMON [Concomitant]

REACTIONS (3)
  - Hypotension [Unknown]
  - Platelet count decreased [Unknown]
  - Malaise [Unknown]
